FAERS Safety Report 10893619 (Version 1)
Quarter: 2015Q1

REPORT INFORMATION
  Report Type: Spontaneous
  Country: US (occurrence: US)
  Receive Date: 20150306
  Receipt Date: 20150306
  Transmission Date: 20150721
  Serious: Yes (Other)
  Sender: FDA-Public Use
  Company Number: US-ABBVIE-15P-163-1356664-00

PATIENT
  Sex: Female
  Weight: 75.36 kg

DRUGS (1)
  1. LUPRON DEPOT [Suspect]
     Active Substance: LEUPROLIDE ACETATE
     Indication: ENDOMETRIOSIS
     Route: 050
     Dates: start: 2011, end: 2011

REACTIONS (10)
  - Nausea [Recovered/Resolved]
  - Abortion spontaneous [Unknown]
  - Hot flush [Recovered/Resolved]
  - Salpingitis [Not Recovered/Not Resolved]
  - Seizure [Recovered/Resolved]
  - Endometriosis [Not Recovered/Not Resolved]
  - Feeling jittery [Recovered/Resolved]
  - Agitation [Recovered/Resolved]
  - Vaginal haemorrhage [Recovered/Resolved]
  - Insomnia [Recovered/Resolved]

NARRATIVE: CASE EVENT DATE: 2011
